FAERS Safety Report 9061706 (Version 1)
Quarter: 2013Q1

REPORT INFORMATION
  Report Type: Spontaneous
  Country: US (occurrence: None)
  Receive Date: 20130122
  Receipt Date: 20130122
  Transmission Date: 20140127
  Serious: Yes (Life-Threatening, Hospitalization)
  Sender: FDA-Public Use
  Company Number: 001453125A

PATIENT
  Age: 18 Year
  Sex: Male

DRUGS (2)
  1. PROACTIVE RENEWING CLEANSER [Suspect]
     Route: 023
     Dates: start: 20121010, end: 20121030
  2. PROACTIV REPAIRING TREATMENT [Suspect]
     Dosage: ONCE DAILY DERMAL
     Route: 023
     Dates: start: 20121010, end: 20121030

REACTIONS (10)
  - Epistaxis [None]
  - Sinusitis [None]
  - Vomiting [None]
  - Back pain [None]
  - Abdominal pain [None]
  - Upper respiratory tract infection [None]
  - Renal failure [None]
  - Hepatic failure [None]
  - Acute lymphocytic leukaemia [None]
  - Haemodialysis [None]
